FAERS Safety Report 5074238-7 (Version None)
Quarter: 2006Q3

REPORT INFORMATION
  Report Type: 
  Country: None (occurrence: None)
  Receive Date: 20060803
  Receipt Date: 20060725
  Transmission Date: 20061208
  Serious: Yes (Death)
  Sender: FDA-Public Use
  Company Number: MSER20060015

PATIENT
  Age: 26 Year
  Sex: Male

DRUGS (1)
  1. MORPHINE [Suspect]
     Dates: start: 20021201, end: 20021201

REACTIONS (3)
  - COMPLETED SUICIDE [None]
  - DRUG ABUSER [None]
  - OVERDOSE [None]
